FAERS Safety Report 21670601 (Version 1)
Quarter: 2022Q4

REPORT INFORMATION
  Report Type: Spontaneous
  Country: US (occurrence: US)
  Receive Date: 20221201
  Receipt Date: 20221201
  Transmission Date: 20230113
  Serious: No
  Sender: FDA-Public Use
  Company Number: US-SA-SAC20221128001422

PATIENT
  Age: 40 Year
  Sex: Male

DRUGS (1)
  1. CERDELGA [Suspect]
     Active Substance: ELIGLUSTAT
     Indication: Gaucher^s disease
     Dosage: DOSE OR AMOUNT: 84MG FREQUENCY: 2 TIMES A DAY
     Route: 048
     Dates: start: 20190715, end: 20221125

REACTIONS (2)
  - Weight decreased [Unknown]
  - Urinary tract infection [Unknown]
